FAERS Safety Report 6682824-3 (Version None)
Quarter: 2010Q2

REPORT INFORMATION
  Report Type: 
  Country: None (occurrence: None)
  Receive Date: 20100415
  Receipt Date: 20100409
  Transmission Date: 20101027
  Serious: Yes (Hospitalization)
  Sender: FDA-Public Use
  Company Number: DE-SANOFI-AVENTIS-2010SA020655

PATIENT
  Age: 40 Year
  Sex: Female

DRUGS (1)
  1. DESMOPRESSIN ACETATE [Suspect]
     Indication: VON WILLEBRAND'S DISEASE

REACTIONS (3)
  - BLOOD PRESSURE DECREASED [None]
  - SHOCK [None]
  - UNRESPONSIVE TO STIMULI [None]
